FAERS Safety Report 7189405-6 (Version None)
Quarter: 2010Q4

REPORT INFORMATION
  Report Type: 
  Country: None (occurrence: None)
  Receive Date: 20101222
  Receipt Date: 20101210
  Transmission Date: 20110411
  Serious: Yes (Other)
  Sender: FDA-Public Use
  Company Number: AU-AMGEN-AUSSP2010008429

PATIENT

DRUGS (2)
  1. NPLATE [Suspect]
     Indication: PRODUCT USED FOR UNKNOWN INDICATION
     Dosage: 9 A?G/KG, UNK
  2. NPLATE [Suspect]
     Dosage: 7 A?G/KG, UNK

REACTIONS (2)
  - PLATELET COUNT DECREASED [None]
  - PLATELET COUNT INCREASED [None]
